FAERS Safety Report 9362435 (Version 1)
Quarter: 2013Q2

REPORT INFORMATION
  Report Type: Spontaneous
  Country: US (occurrence: US)
  Receive Date: 20130622
  Receipt Date: 20130622
  Transmission Date: 20140414
  Serious: No
  Sender: FDA-Public Use
  Company Number: US-US-EMD SERONO, INC.-7167868

PATIENT
  Age: 48 Year
  Sex: Female

DRUGS (3)
  1. REBIF [Suspect]
     Indication: MULTIPLE SCLEROSIS
     Route: 058
     Dates: start: 20120819
  2. NUVIGIL [Suspect]
     Indication: PRODUCT USED FOR UNKNOWN INDICATION
  3. UNSPECIFIED STEROIDS [Suspect]
     Indication: MULTIPLE SCLEROSIS RELAPSE

REACTIONS (6)
  - Dizziness [Not Recovered/Not Resolved]
  - Feeling abnormal [Not Recovered/Not Resolved]
  - Dry mouth [Not Recovered/Not Resolved]
  - Multiple sclerosis [Unknown]
  - Injection site erythema [Not Recovered/Not Resolved]
  - Injection site pain [Not Recovered/Not Resolved]
